FAERS Safety Report 9165355 (Version 2)
Quarter: 2013Q1

REPORT INFORMATION
  Report Type: Report from Study
  Country: CA (occurrence: CA)
  Receive Date: 20130315
  Receipt Date: 20130320
  Transmission Date: 20140127
  Serious: Yes (Other)
  Sender: FDA-Public Use
  Company Number: CA-JNJFOC-20130301612

PATIENT
  Age: 31 Year
  Sex: Female
  Weight: 65.9 kg

DRUGS (1)
  1. REMICADE [Suspect]
     Indication: ANKYLOSING SPONDYLITIS
     Route: 042
     Dates: start: 20100518

REACTIONS (5)
  - Pharyngitis streptococcal [Not Recovered/Not Resolved]
  - Intervertebral disc protrusion [Recovering/Resolving]
  - Sleep disorder [Unknown]
  - Candida infection [Not Recovered/Not Resolved]
  - Vaginitis bacterial [Not Recovered/Not Resolved]
